FAERS Safety Report 18173377 (Version 2)
Quarter: 2020Q3

REPORT INFORMATION
  Report Type: Report from Study
  Country: US (occurrence: US)
  Receive Date: 20200820
  Receipt Date: 20200910
  Transmission Date: 20201103
  Serious: Yes (Death, Other)
  Sender: FDA-Public Use
  Company Number: US-ROCHE-2661076

PATIENT
  Age: 50 Year
  Sex: Female
  Weight: 56.69 kg

DRUGS (9)
  1. ZOFRAN [Concomitant]
     Active Substance: ONDANSETRON HYDROCHLORIDE
  2. NALOXONE [Concomitant]
     Active Substance: NALOXONE
  3. AMLODIPINE [Concomitant]
     Active Substance: AMLODIPINE BESYLATE
  4. MAGNESIUM [Concomitant]
     Active Substance: MAGNESIUM
  5. TESSALON [Concomitant]
     Active Substance: BENZONATATE
  6. XL184 [Suspect]
     Active Substance: CABOZANTINIB
     Indication: NON-SMALL CELL LUNG CANCER
     Dosage: ON 22/JUL/2020, THE PATIENT RECEIVED THE MOST RECENT DOSE OF CABOZANTINIB PRIOR TO THE EVENT.
     Route: 048
     Dates: start: 20190419, end: 20200723
  7. ATEZOLIZUMAB. [Suspect]
     Active Substance: ATEZOLIZUMAB
     Indication: NON-SMALL CELL LUNG CANCER
     Dosage: ON 02/JUL/2020, THE PATIENT RECEIVED THE MOST RECENT DOSE OF ATEZOLIZUMAB PRIOR TO THE EVENT.
     Route: 041
     Dates: start: 20190419, end: 20200723
  8. OXYCODONE [Concomitant]
     Active Substance: OXYCODONE
  9. PROTONIX [Concomitant]
     Active Substance: PANTOPRAZOLE SODIUM

REACTIONS (2)
  - Large intestine perforation [Unknown]
  - Septic shock [Fatal]

NARRATIVE: CASE EVENT DATE: 20200728
